FAERS Safety Report 13759577 (Version 1)
Quarter: 2017Q3

REPORT INFORMATION
  Report Type: Spontaneous
  Country: US (occurrence: US)
  Receive Date: 20170717
  Receipt Date: 20170717
  Transmission Date: 20171127
  Serious: No
  Sender: FDA-Public Use
  Company Number: US-ENDO PHARMACEUTICALS INC-2017-002617

PATIENT
  Sex: Male
  Weight: 85.71 kg

DRUGS (3)
  1. EDEX [Suspect]
     Active Substance: ALPROSTADIL
     Dosage: 40 ?G, UNKNOWN
     Route: 017
  2. EDEX [Suspect]
     Active Substance: ALPROSTADIL
     Indication: PROSTATECTOMY
     Dosage: 20 ?G, UNKNOWN
     Route: 017
     Dates: start: 2013
  3. EDEX [Suspect]
     Active Substance: ALPROSTADIL
     Dosage: 20 ?G, UNKNOWN
     Route: 017
     Dates: start: 201612

REACTIONS (1)
  - Drug ineffective [Unknown]
